FAERS Safety Report 12742616 (Version 4)
Quarter: 2016Q3

REPORT INFORMATION
  Report Type: Spontaneous
  Country: US (occurrence: US)
  Receive Date: 20160914
  Receipt Date: 20160929
  Transmission Date: 20161109
  Serious: No
  Sender: FDA-Public Use
  Company Number: US-BAYER-2016-175245

PATIENT
  Age: 41 Year
  Sex: Female

DRUGS (1)
  1. MIRENA [Suspect]
     Active Substance: LEVONORGESTREL
     Dosage: 20 MCG/24HR, CONT
     Route: 015
     Dates: start: 20160426, end: 20160819

REACTIONS (5)
  - Pain [None]
  - Adverse event [None]
  - Depression [None]
  - Abdominal pain lower [None]
  - Mood altered [None]

NARRATIVE: CASE EVENT DATE: 2016
